FAERS Safety Report 6411202-7 (Version None)
Quarter: 2009Q4

REPORT INFORMATION
  Report Type: 
  Country: None (occurrence: None)
  Receive Date: 20091019
  Receipt Date: 20091013
  Transmission Date: 20100525
  Serious: Yes (Hospitalization)
  Sender: FDA-Public Use
  Company Number: 20096302

PATIENT
  Age: 65 Year
  Sex: Female
  Weight: 56.4 kg

DRUGS (3)
  1. BACLOFEN [Suspect]
     Indication: MUSCLE SPASTICITY
     Dosage: 60  MCG, DAILY, INTRATHECAL
     Route: 037
     Dates: start: 20080728
  2. OPALMON [Concomitant]
  3. WARFARIN SODIUM [Concomitant]

REACTIONS (5)
  - ATRIOVENTRICULAR BLOCK [None]
  - COLD SWEAT [None]
  - PALPITATIONS [None]
  - TACHYCARDIA PAROXYSMAL [None]
  - YAWNING [None]
